FAERS Safety Report 6928864-8 (Version None)
Quarter: 2010Q3

REPORT INFORMATION
  Report Type: 
  Country: None (occurrence: None)
  Receive Date: 20100817
  Receipt Date: 20100804
  Transmission Date: 20110219
  Serious: Yes (Other)
  Sender: FDA-Public Use
  Company Number: JP-ABBOTT-10P-087-0646375-00

PATIENT
  Sex: Female

DRUGS (4)
  1. FENOFIBRATE [Suspect]
     Indication: HYPERLIPIDAEMIA
     Dosage: 100MG DAILY
     Route: 048
     Dates: start: 20100315, end: 20100411
  2. FENOFIBRATE [Suspect]
     Route: 048
     Dates: start: 20100412, end: 20100515
  3. FENOFIBRATE [Suspect]
  4. SODIUM RISEDRONATE HYDRATE [Concomitant]
     Indication: PRODUCT USED FOR UNKNOWN INDICATION
     Dates: start: 20100417

REACTIONS (1)
  - HEPATIC FUNCTION ABNORMAL [None]
